FAERS Safety Report 7207315-2 (Version None)
Quarter: 2011Q1

REPORT INFORMATION
  Report Type: 
  Country: None (occurrence: None)
  Receive Date: 20110103
  Receipt Date: 20101229
  Transmission Date: 20110831
  Serious: Yes (Hospitalization)
  Sender: FDA-Public Use
  Company Number: KR-ROCHE-751061

PATIENT
  Sex: Female
  Weight: 104 kg

DRUGS (9)
  1. ACETAMINOPHEN [Concomitant]
     Dates: start: 20100113
  2. POVIDONE IODINE [Concomitant]
     Dates: start: 20100113
  3. AMLODIPINE BESYLATE [Concomitant]
     Dates: start: 20100506
  4. INTERFERON ALFA [Suspect]
     Dosage: DOSE: 9 MU, FREQUENCY: 3X/WEEK
     Route: 058
     Dates: start: 20100113
  5. BEVACIZUMAB [Suspect]
     Route: 042
     Dates: start: 20100113
  6. MACPERAN [Concomitant]
     Dates: start: 20100113
  7. BENZYDAMINE [Concomitant]
     Dates: start: 20100113
  8. MYPOL [Concomitant]
     Dates: start: 20100506
  9. PROCTOSEDYL [Concomitant]
     Dates: start: 20100506

REACTIONS (1)
  - APPENDICITIS [None]
